FAERS Safety Report 16306026 (Version 3)
Quarter: 2021Q2

REPORT INFORMATION
  Report Type: Spontaneous
  Country: US (occurrence: US)
  Receive Date: 20190513
  Receipt Date: 20210617
  Transmission Date: 20210716
  Serious: Yes (Other)
  Sender: FDA-Public Use
  Company Number: US-ASTRAZENECA-2019SE63894

PATIENT
  Age: 18074 Day
  Sex: Male
  Weight: 111.6 kg

DRUGS (60)
  1. NEXIUM 24HR [Suspect]
     Active Substance: ESOMEPRAZOLE MAGNESIUM
     Indication: GASTROOESOPHAGEAL REFLUX DISEASE
     Route: 048
     Dates: start: 2014, end: 2017
  2. PRILOSEC [Suspect]
     Active Substance: OMEPRAZOLE MAGNESIUM
     Indication: GASTROOESOPHAGEAL REFLUX DISEASE
     Route: 048
     Dates: start: 200706, end: 201709
  3. PRILOSEC [Suspect]
     Active Substance: OMEPRAZOLE MAGNESIUM
     Indication: GASTROOESOPHAGEAL REFLUX DISEASE
     Dosage: GENERIC
     Route: 065
     Dates: end: 2018
  4. MULTIVITAMINS [Concomitant]
     Active Substance: VITAMINS
  5. PROVENTIL [Concomitant]
     Active Substance: ALBUTEROL
  6. SODIUM CHLORIDE. [Concomitant]
     Active Substance: SODIUM CHLORIDE
  7. FENTANYL. [Concomitant]
     Active Substance: FENTANYL
  8. FLOMAX [Concomitant]
     Active Substance: TAMSULOSIN HYDROCHLORIDE
  9. GLUCOSE [Concomitant]
     Active Substance: DEXTROSE
  10. NEXIUM [Suspect]
     Active Substance: ESOMEPRAZOLE MAGNESIUM
     Indication: GASTROOESOPHAGEAL REFLUX DISEASE
     Route: 048
     Dates: start: 200706, end: 201709
  11. PRILOSEC OTC [Suspect]
     Active Substance: OMEPRAZOLE MAGNESIUM
     Indication: GASTROOESOPHAGEAL REFLUX DISEASE
     Route: 048
     Dates: start: 200706, end: 201709
  12. MORPHINE SULFATE. [Concomitant]
     Active Substance: MORPHINE SULFATE
  13. MIDAZOLAM. [Concomitant]
     Active Substance: MIDAZOLAM
  14. RIBAVIRIN. [Concomitant]
     Active Substance: RIBAVIRIN
  15. TRIAMCINOLONE [Concomitant]
     Active Substance: TRIAMCINOLONE
  16. DIPHENHYDRAMINE. [Concomitant]
     Active Substance: DIPHENHYDRAMINE
  17. REGLAN [Concomitant]
     Active Substance: METOCLOPRAMIDE HYDROCHLORIDE
  18. OMNIPAQUE [Concomitant]
     Active Substance: IOHEXOL
  19. PRINIVIL [Concomitant]
     Active Substance: LISINOPRIL
  20. HEPARIN [Concomitant]
     Active Substance: HEPARIN SODIUM
  21. INTERFEROR [Concomitant]
  22. QVAR [Concomitant]
     Active Substance: BECLOMETHASONE DIPROPIONATE
  23. MENTHOL. [Concomitant]
     Active Substance: MENTHOL
  24. NEXIUM [Suspect]
     Active Substance: ESOMEPRAZOLE MAGNESIUM
     Indication: GASTROOESOPHAGEAL REFLUX DISEASE
     Route: 048
     Dates: start: 2001, end: 2017
  25. PRILOSEC OTC [Suspect]
     Active Substance: OMEPRAZOLE MAGNESIUM
     Indication: GASTROOESOPHAGEAL REFLUX DISEASE
     Route: 048
     Dates: start: 2007, end: 2017
  26. LISINOPRIL. [Concomitant]
     Active Substance: LISINOPRIL
     Indication: BLOOD PRESSURE ABNORMAL
     Route: 065
     Dates: start: 2004, end: 2021
  27. CELEXA [Concomitant]
     Active Substance: CITALOPRAM HYDROBROMIDE
  28. VITAMIN D [Concomitant]
     Active Substance: VITAMIN D NOS
  29. MEDROL [Concomitant]
     Active Substance: METHYLPREDNISOLONE
  30. VISIPAQUE [Concomitant]
     Active Substance: IODIXANOL
  31. COENZYME Q10 [Concomitant]
     Active Substance: DIETARY SUPPLEMENT\UBIDECARENONE
  32. OXYCONTIN [Concomitant]
     Active Substance: OXYCODONE HYDROCHLORIDE
  33. ZETIA [Concomitant]
     Active Substance: EZETIMIBE
  34. HYDROCHLOROTHIAZIDE. [Concomitant]
     Active Substance: HYDROCHLOROTHIAZIDE
  35. CYCLOBENAZAPRINE [Concomitant]
  36. DOXYCYLINE HYCLATE [Concomitant]
     Active Substance: DOXYCYCLINE HYCLATE
  37. DOCUSATE SODIUM. [Concomitant]
     Active Substance: DOCUSATE SODIUM
  38. CLINDAMYCIN. [Concomitant]
     Active Substance: CLINDAMYCIN
  39. PHENERGAN [Concomitant]
     Active Substance: PROMETHAZINE HYDROCHLORIDE
  40. HYDROXYZINE PAMOATE. [Concomitant]
     Active Substance: HYDROXYZINE PAMOATE
  41. CLARITIN [Concomitant]
     Active Substance: LORATADINE
  42. ZOLPIDEM [Concomitant]
     Active Substance: ZOLPIDEM TARTRATE
  43. NEXIUM [Suspect]
     Active Substance: ESOMEPRAZOLE MAGNESIUM
     Indication: GASTROOESOPHAGEAL REFLUX DISEASE
     Dosage: GENERIC
     Route: 065
     Dates: start: 2015
  44. PRILOSEC [Suspect]
     Active Substance: OMEPRAZOLE MAGNESIUM
     Indication: GASTROOESOPHAGEAL REFLUX DISEASE
     Dosage: GENERIC
     Route: 048
     Dates: start: 20180912
  45. ADVAIR DISKUS [Concomitant]
     Active Substance: FLUTICASONE PROPIONATE\SALMETEROL XINAFOATE
  46. PENICILLIN [Concomitant]
     Active Substance: PENICILLIN
  47. LIDOCAINE. [Concomitant]
     Active Substance: LIDOCAINE
  48. METHOCARBAMOL. [Concomitant]
     Active Substance: METHOCARBAMOL
  49. SERTRALINE HHYDROCHLORIDE [Concomitant]
  50. ONDANSETRON [Concomitant]
     Active Substance: ONDANSETRON
  51. TYLENOL [Concomitant]
     Active Substance: ACETAMINOPHEN
  52. SENNA [Concomitant]
     Active Substance: SENNA LEAF\SENNOSIDES\SENNOSIDES A AND B
  53. PRILOSEC [Suspect]
     Active Substance: OMEPRAZOLE MAGNESIUM
     Indication: GASTROOESOPHAGEAL REFLUX DISEASE
     Route: 048
     Dates: start: 2007, end: 2017
  54. RENVELA [Concomitant]
     Active Substance: SEVELAMER CARBONATE
  55. AMLODIPINE [Concomitant]
     Active Substance: AMLODIPINE BESYLATE
  56. SALSALATE. [Concomitant]
     Active Substance: SALSALATE
  57. PAROXETINE. [Concomitant]
     Active Substance: PAROXETINE
  58. KEFLEX [Concomitant]
     Active Substance: CEPHALEXIN
  59. SENOKOT [Concomitant]
     Active Substance: SENNOSIDES
  60. PROPOFOL. [Concomitant]
     Active Substance: PROPOFOL

REACTIONS (5)
  - Hyperparathyroidism secondary [Unknown]
  - Chronic kidney disease [Not Recovered/Not Resolved]
  - Acute kidney injury [Not Recovered/Not Resolved]
  - End stage renal disease [Not Recovered/Not Resolved]
  - Renal failure [Unknown]

NARRATIVE: CASE EVENT DATE: 20181004
